FAERS Safety Report 12237212 (Version 1)
Quarter: 2016Q2

REPORT INFORMATION
  Report Type: Spontaneous
  Country: US (occurrence: None)
  Receive Date: 20160404
  Receipt Date: 20160404
  Transmission Date: 20160815
  Serious: Yes (Hospitalization)
  Sender: FDA-Public Use
  Company Number: None

PATIENT
  Age: 72 Year
  Sex: Male
  Weight: 92.99 kg

DRUGS (4)
  1. LOSARTAN. [Suspect]
     Active Substance: LOSARTAN
     Indication: HYPERTENSION
     Route: 048
     Dates: start: 20160228, end: 20160323
  2. PROPECIA [Concomitant]
     Active Substance: FINASTERIDE
  3. METHYLPREDNISOLONE. [Suspect]
     Active Substance: METHYLPREDNISOLONE
     Indication: PERIPHERAL SWELLING
     Dosage: 21 TABLET(S) DOSEPAK TAKEN BY MOUTH
     Route: 048
     Dates: start: 20160325, end: 20160331
  4. ASPIRIN. [Concomitant]
     Active Substance: ASPIRIN

REACTIONS (17)
  - Middle insomnia [None]
  - Peripheral swelling [None]
  - Pain in extremity [None]
  - Dehydration [None]
  - Exostosis [None]
  - Product substitution issue [None]
  - Seizure [None]
  - Urticaria [None]
  - Hypoaesthesia [None]
  - Blood pressure abnormal [None]
  - Paraesthesia [None]
  - Dizziness [None]
  - Dysphonia [None]
  - Orthostatic intolerance [None]
  - Intervertebral disc disorder [None]
  - Fatigue [None]
  - Rash pruritic [None]

NARRATIVE: CASE EVENT DATE: 20160319
